FAERS Safety Report 10963522 (Version 1)
Quarter: 2015Q1

REPORT INFORMATION
  Report Type: Spontaneous
  Country: US (occurrence: None)
  Receive Date: 20150226
  Receipt Date: 20150226
  Transmission Date: 20150721
  Serious: No
  Sender: FDA-Public Use
  Company Number: TPA2009A03307

PATIENT
  Age: 51 Year
  Sex: Male
  Weight: 104.33 kg

DRUGS (3)
  1. DIOVAN [Concomitant]
     Active Substance: VALSARTAN
  2. ZOCOR [Concomitant]
     Active Substance: SIMVASTATIN
  3. ULORIC [Suspect]
     Active Substance: FEBUXOSTAT
     Indication: GOUT
     Route: 048
     Dates: start: 20091012

REACTIONS (1)
  - Pollakiuria [None]

NARRATIVE: CASE EVENT DATE: 200910
